FAERS Safety Report 5516817-6 (Version None)
Quarter: 2007Q4

REPORT INFORMATION
  Report Type: 
  Country: None (occurrence: None)
  Receive Date: 20071114
  Receipt Date: 20071107
  Transmission Date: 20080405
  Serious: Yes (Hospitalization)
  Sender: FDA-Public Use
  Company Number: US-AVENTIS-200720287GDDC

PATIENT
  Age: 52 Year
  Sex: Female
  Weight: 63.8 kg

DRUGS (22)
  1. TAXOTERE [Suspect]
     Route: 042
     Dates: start: 20071029, end: 20071029
  2. LONAFARNIB [Suspect]
     Route: 048
     Dates: start: 20071019
  3. DEXAMETHASONE [Concomitant]
  4. PROCHLORPERAZINE [Concomitant]
     Dosage: DOSE: 10 QID
     Route: 048
  5. POTASSIUM CHLORIDE [Concomitant]
     Dosage: DOSE: 1 TABLET
     Route: 048
  6. LOMOTIL                            /00034001/ [Concomitant]
     Dosage: DOSE: 2 TABLETS QID
     Route: 048
  7. GUAIFENESIN WITH HYDROCODONE [Concomitant]
     Dosage: DOSE: 5 Q4H
     Route: 048
  8. ESZOPICLONE [Concomitant]
     Route: 048
  9. BENZONATATE [Concomitant]
     Dosage: DOSE: 100 TID
     Route: 048
  10. BENZONATATE [Concomitant]
     Dosage: DOSE: 200 MG Q8H
     Route: 048
  11. FEXOFENADINE [Concomitant]
     Dosage: DOSE: 60 BID
  12. ASPIRIN [Concomitant]
  13. BACTRIM [Concomitant]
     Dosage: DOSE: 1 TABLET
     Route: 048
  14. CONJUGATED ESTROGENS [Concomitant]
     Route: 048
  15. ALCLOMETASONE [Concomitant]
     Route: 061
  16. METRONIDAZOLE [Concomitant]
     Route: 061
  17. VICODIN [Concomitant]
     Dosage: DOSE: 5/500
  18. LORAZEPAM [Concomitant]
     Dosage: DOSE: 1 TABLET TID
     Route: 048
  19. GEFITINIB [Concomitant]
     Route: 048
  20. FUROSEMIDE [Concomitant]
     Route: 048
  21. MULTI-VITAMINS [Concomitant]
  22. CALCIUM CITRATE [Concomitant]
     Route: 048

REACTIONS (1)
  - PNEUMOTHORAX [None]
